FAERS Safety Report 10286339 (Version 2)
Quarter: 2014Q3

REPORT INFORMATION
  Report Type: Spontaneous
  Country: JP (occurrence: None)
  Receive Date: 20140707
  Receipt Date: 20140714
  Transmission Date: 20150326
  Serious: Yes (Hospitalization, Other)
  Sender: FDA-Public Use
  Company Number: ADR-2014-01150

PATIENT
  Age: 20 Year
  Sex: Female

DRUGS (2)
  1. DANTROLENE [Suspect]
     Active Substance: DANTROLENE
     Dates: start: 20140425
  2. GABALON [Suspect]
     Active Substance: BACLOFEN
     Indication: CEREBRAL PALSY
     Dates: start: 20070425

REACTIONS (11)
  - Condition aggravated [None]
  - Convulsion [None]
  - Therapy cessation [None]
  - Vomiting [None]
  - Aphagia [None]
  - Drug withdrawal syndrome [None]
  - Blood creatine phosphokinase increased [None]
  - Neuroleptic malignant syndrome [None]
  - Muscle spasticity [None]
  - Pyrexia [None]
  - Rhabdomyolysis [None]

NARRATIVE: CASE EVENT DATE: 20130224
